FAERS Safety Report 8772442 (Version 7)
Quarter: 2012Q4

REPORT INFORMATION
  Report Type: 
  Country: US (occurrence: US)
  Receive Date: 20120905
  Receipt Date: 20121213
  Transmission Date: 20130627
  Serious: Yes (Hospitalization, Other)
  Sender: FDA-Public Use
  Company Number: US-009507513-1203USA00202

PATIENT

DRUGS (7)
  1. FOSAMAX [Suspect]
     Indication: OSTEOPENIA
     Dosage: 5 mg, qd
     Route: 048
     Dates: start: 20000306, end: 20001227
  2. FOSAMAX [Suspect]
     Dosage: 5 UNK, UNK
     Route: 048
     Dates: start: 20020821, end: 20030219
  3. FOSAMAX [Suspect]
     Dosage: 70 mg, qw
     Route: 048
     Dates: start: 20030822
  4. FOSAMAX [Suspect]
     Dosage: UNK
     Route: 048
     Dates: start: 1997, end: 2009
  5. FOSAMAX PLUS D [Suspect]
     Indication: OSTEOPENIA
     Dosage: 70 mg, qw
     Route: 048
     Dates: start: 20060921, end: 20081031
  6. RECLAST [Suspect]
     Indication: OSTEOPENIA
     Dosage: 5mg/100mL
     Route: 042
     Dates: start: 20090107, end: 20100112
  7. HORMONES (UNSPECIFIED) [Concomitant]

REACTIONS (21)
  - Intramedullary rod insertion [Unknown]
  - Basal cell carcinoma [Unknown]
  - Anaemia postoperative [Unknown]
  - Basal cell carcinoma [Unknown]
  - Transfusion [Unknown]
  - Femur fracture [Recovering/Resolving]
  - Low turnover osteopathy [Unknown]
  - Tooth extraction [Unknown]
  - Osteoporosis postmenopausal [Unknown]
  - Hypertension [Unknown]
  - Hyperlipidaemia [Unknown]
  - Spinal osteoarthritis [Unknown]
  - Rosacea [Unknown]
  - Osteoarthritis [Not Recovered/Not Resolved]
  - Pain [Not Recovered/Not Resolved]
  - Hypokalaemia [Unknown]
  - Inappropriate schedule of drug administration [Unknown]
  - Hypertension [Unknown]
  - Skin wrinkling [Unknown]
  - Eye disorder [Unknown]
  - Stomatitis [Unknown]
